FAERS Safety Report 6727211-4 (Version None)
Quarter: 2010Q2

REPORT INFORMATION
  Report Type: 
  Country: None (occurrence: None)
  Receive Date: 20100517
  Receipt Date: 20100429
  Transmission Date: 20101027
  Serious: Yes (Death)
  Sender: FDA-Public Use
  Company Number: US-BRACCO-000429

PATIENT
  Sex: Male
  Weight: 101 kg

DRUGS (3)
  1. MULTIHANCE [Suspect]
     Indication: ANGIOGRAM
     Route: 042
     Dates: start: 20080310, end: 20080310
  2. MULTIHANCE [Suspect]
     Indication: PERIPHERAL VASCULAR DISORDER
     Route: 042
     Dates: start: 20080310, end: 20080310
  3. XANAX [Concomitant]
     Route: 065

REACTIONS (3)
  - CARDIAC ARREST [None]
  - CHEST PAIN [None]
  - LOSS OF CONSCIOUSNESS [None]
